FAERS Safety Report 8910631 (Version 1)
Quarter: 2012Q4

REPORT INFORMATION
  Report Type: Spontaneous
  Country: GB (occurrence: None)
  Receive Date: 20121107
  Receipt Date: 20121107
  Transmission Date: 20130627
  Serious: Yes (Life-Threatening, Hospitalization)
  Sender: FDA-Public Use
  Company Number: AUR-APL-2012-04703

PATIENT
  Age: 48 Year
  Sex: Male

DRUGS (3)
  1. RIBAVIRIN [Suspect]
     Indication: HEPATITIS C
     Route: 048
     Dates: start: 20120507
  2. TELAPREVIR [Suspect]
     Indication: HEPATITIS C
     Dosage: (750 mg, 3 in 1 D)
     Route: 048
     Dates: start: 20120507, end: 20120730
  3. PEGINTERFERON ALFA 2B [Suspect]
     Indication: HEPATITIS C
     Route: 058
     Dates: start: 20120507

REACTIONS (2)
  - Myocardial infarction [None]
  - Fatigue [None]
